FAERS Safety Report 5298270-3 (Version None)
Quarter: 2007Q2

REPORT INFORMATION
  Report Type: 
  Country: None (occurrence: None)
  Receive Date: 20070409
  Receipt Date: 20070326
  Transmission Date: 20071010
  Serious: Yes (Other)
  Sender: FDA-Public Use
  Company Number: B0464312A

PATIENT
  Age: 45 Year
  Sex: Male

DRUGS (5)
  1. PYRIMETHAMINE TAB [Suspect]
     Indication: CEREBRAL TOXOPLASMOSIS
  2. ZIDOVUDINE [Suspect]
     Indication: HIV INFECTION
     Dates: start: 20010827
  3. LAMIVUDINE [Suspect]
     Indication: HIV INFECTION
     Dates: start: 20010827
  4. INDINIVIR SULFATE [Suspect]
     Indication: HIV INFECTION
     Dates: start: 20010827
  5. CLINDAMYCIN [Concomitant]

REACTIONS (5)
  - ACUTE RESPIRATORY DISTRESS SYNDROME [None]
  - HISTOPLASMOSIS DISSEMINATED [None]
  - PANCYTOPENIA [None]
  - PNEUMONIA [None]
  - RENAL FAILURE ACUTE [None]
